FAERS Safety Report 9286120 (Version 2)
Quarter: 2013Q3

REPORT INFORMATION
  Report Type: Spontaneous
  Country: BR (occurrence: BR)
  Receive Date: 20130513
  Receipt Date: 20130717
  Transmission Date: 20140515
  Serious: Yes (Other)
  Sender: FDA-Public Use
  Company Number: PHHY2013BR046832

PATIENT
  Sex: Female

DRUGS (6)
  1. RITALINA [Suspect]
     Indication: ATTENTION DEFICIT/HYPERACTIVITY DISORDER
     Dosage: 3 DF, 2 OR 3 TABLETS PER DAY
     Route: 048
  2. RITALINA [Suspect]
     Indication: HEADACHE
     Dosage: UNK UKN, UNK
  3. RITALINA [Suspect]
     Indication: OFF LABEL USE
  4. DIPYRONE [Concomitant]
     Indication: HEADACHE
     Dosage: UNK UKN, UNK
  5. FLORAL [Concomitant]
     Indication: PSYCHOMOTOR HYPERACTIVITY
     Dosage: UNK UKN, UNK
  6. FLORAL [Concomitant]
     Indication: IMPULSIVE BEHAVIOUR

REACTIONS (7)
  - General physical health deterioration [Unknown]
  - Headache [Recovered/Resolved]
  - Disturbance in attention [Recovered/Resolved]
  - Impulsive behaviour [Recovered/Resolved]
  - Psychomotor hyperactivity [Recovered/Resolved]
  - Restlessness [Recovered/Resolved]
  - Withdrawal syndrome [Unknown]
